FAERS Safety Report 11042956 (Version 1)
Quarter: 2015Q2

REPORT INFORMATION
  Report Type: Spontaneous
  Country: JP (occurrence: JP)
  Receive Date: 20150417
  Receipt Date: 20150417
  Transmission Date: 20150821
  Serious: Yes (Hospitalization, Other)
  Sender: FDA-Public Use
  Company Number: JP-AMGEN-JPNSP2014045534

PATIENT
  Sex: Female
  Weight: 2.94 kg

DRUGS (1)
  1. ENBREL [Suspect]
     Active Substance: ETANERCEPT
     Indication: EXPOSURE DURING PREGNANCY
     Dosage: 50 MG, WEEKLY
     Route: 064
     Dates: start: 2009

REACTIONS (4)
  - Feeding disorder neonatal [Unknown]
  - Vomiting [Unknown]
  - Maternal exposure during pregnancy [Unknown]
  - Foetal heart rate decreased [Unknown]

NARRATIVE: CASE EVENT DATE: 2014
